FAERS Safety Report 5271244-4 (Version None)
Quarter: 2007Q1

REPORT INFORMATION
  Report Type: 
  Country: None (occurrence: None)
  Receive Date: 20070321
  Receipt Date: 20070309
  Transmission Date: 20070707
  Serious: Yes (Other)
  Sender: FDA-Public Use
  Company Number: IT-JNJFOC-20070302770

PATIENT
  Age: 21 Year
  Sex: Female

DRUGS (1)
  1. TOPAMAX [Suspect]
     Indication: POST-TRAUMATIC EPILEPSY
     Route: 048

REACTIONS (1)
  - SINUS TACHYCARDIA [None]
